FAERS Safety Report 15335922 (Version 1)
Quarter: 2018Q3

REPORT INFORMATION
  Report Type: Spontaneous
  Country: BR (occurrence: BR)
  Receive Date: 20180830
  Receipt Date: 20180830
  Transmission Date: 20181010
  Serious: Yes (Other)
  Sender: FDA-Public Use
  Company Number: PHHY2018BR083229

PATIENT
  Age: 72 Year
  Sex: Female

DRUGS (2)
  1. DORSAL [Concomitant]
     Indication: PRODUCT USED FOR UNKNOWN INDICATION
     Dosage: UNK UNK, Q12H
     Route: 065
  2. DUOTRAV BAC?FREE [Suspect]
     Active Substance: TIMOLOL\TRAVOPROST
     Indication: PRODUCT USED FOR UNKNOWN INDICATION
     Route: 047

REACTIONS (7)
  - Vision blurred [Unknown]
  - Intraocular pressure increased [Unknown]
  - Eye pain [Unknown]
  - Cataract [Unknown]
  - Abnormal sensation in eye [Unknown]
  - Visual impairment [Unknown]
  - Eye inflammation [Unknown]

NARRATIVE: CASE EVENT DATE: 201712
